FAERS Safety Report 5233550-9 (Version None)
Quarter: 2007Q1

REPORT INFORMATION
  Report Type: 
  Country: None (occurrence: None)
  Receive Date: 20070206
  Receipt Date: 20070122
  Transmission Date: 20070707
  Serious: Yes (Other)
  Sender: FDA-Public Use
  Company Number: 2006US-03674

PATIENT
  Age: 18 Year
  Sex: Male

DRUGS (3)
  1. MINOCYCLINE HCL [Suspect]
     Indication: ACNE
     Dosage: 100 MG, QD, ORAL
     Route: 048
     Dates: start: 20060731
  2. ELIDEL [Concomitant]
  3. AZELAM (AZELAIC ACID) [Concomitant]

REACTIONS (1)
  - GRAND MAL CONVULSION [None]
